FAERS Safety Report 10024528 (Version 2)
Quarter: 2014Q1

REPORT INFORMATION
  Report Type: Report from Study
  Country: US (occurrence: US)
  Receive Date: 20140320
  Receipt Date: 20140320
  Transmission Date: 20141002
  Serious: Yes (Hospitalization)
  Sender: FDA-Public Use
  Company Number: US-ALEXION-A201201380

PATIENT
  Age: 42 Year
  Sex: Female
  Weight: 81.6 kg

DRUGS (7)
  1. SOLIRIS [Suspect]
     Indication: PAROXYSMAL NOCTURNAL HAEMOGLOBINURIA
     Dosage: 900 MG, Q2W
     Route: 042
     Dates: start: 20050810
  2. ALLOPURINOL [Concomitant]
     Dosage: 300 MG, QD
     Route: 048
  3. CALCIUM WITH VITAMIN D [Concomitant]
     Dosage: 1 TABLET, QD
     Route: 048
  4. FOLIC ACID [Concomitant]
     Dosage: 1 MG, QD
     Route: 048
  5. MULTIVITAMIN AND MINERAL [Concomitant]
     Dosage: UNK, QD
  6. POTASSIUM CHLORIDE [Concomitant]
     Dosage: 10 MEQ, BID
     Route: 048
  7. PERCOCET [Concomitant]
     Indication: PAIN
     Dosage: 5/325 Q6H, PRN
     Route: 048

REACTIONS (6)
  - Dysmenorrhoea [Recovered/Resolved]
  - Paroxysmal nocturnal haemoglobinuria [Recovered/Resolved]
  - Condition aggravated [Recovered/Resolved]
  - Urinary tract infection [Recovered/Resolved]
  - Haemoglobinuria [Unknown]
  - Abdominal pain [Unknown]
